FAERS Safety Report 17806845 (Version 1)
Quarter: 2020Q2

REPORT INFORMATION
  Report Type: Spontaneous
  Country: US (occurrence: US)
  Receive Date: 20200519
  Receipt Date: 20200519
  Transmission Date: 20200714
  Serious: No
  Sender: FDA-Public Use
  Company Number: None

PATIENT
  Age: 23 Year
  Sex: Female
  Weight: 51.75 kg

DRUGS (1)
  1. CLOBETASOL PROPIONATE. [Suspect]
     Active Substance: CLOBETASOL PROPIONATE
     Indication: ECZEMA
     Route: 061

REACTIONS (4)
  - Rosacea [None]
  - Perioral dermatitis [None]
  - Application site pain [None]
  - Application site pustules [None]

NARRATIVE: CASE EVENT DATE: 20200406
